FAERS Safety Report 4267137-1 (Version None)
Quarter: 2004Q1

REPORT INFORMATION
  Report Type: 
  Country: None (occurrence: None)
  Receive Date: 20040107
  Receipt Date: 20031230
  Transmission Date: 20041129
  Serious: Yes (Death, Life-Threatening, Hospitalization, Disabling)
  Sender: FDA-Public Use
  Company Number: D01200302050

PATIENT
  Age: 83 Year
  Sex: Female

DRUGS (6)
  1. CLOPIDOGREL BISULFATE [Suspect]
     Indication: CEREBROVASCULAR ACCIDENT PROPHYLAXIS
     Dosage: 75 MG, QD, ORAL
     Route: 048
     Dates: start: 20030919
  2. CLOPIDOGREL BISULFATE [Suspect]
     Indication: PROPHYLAXIS
     Dosage: 75 MG, QD, ORAL
     Route: 048
     Dates: start: 20030919
  3. IRBESARTAN / PLACEBO [Suspect]
     Indication: BLOOD PRESSURE
     Dosage: SEE IMAGE
     Route: 048
     Dates: start: 20030917
  4. IRBESARTAN / PLACEBO [Suspect]
     Indication: CEREBROVASCULAR ACCIDENT PROPHYLAXIS
     Dosage: SEE IMAGE
     Route: 048
     Dates: start: 20030917
  5. IRBESARTAN / PLACEBO [Suspect]
     Indication: PROPHYLAXIS
     Dosage: SEE IMAGE
     Route: 048
     Dates: start: 20030917
  6. ACETYLSALICYLIC ACID SRT [Concomitant]

REACTIONS (1)
  - HAEMORRHAGIC STROKE [None]
